FAERS Safety Report 19886853 (Version 1)
Quarter: 2021Q3

REPORT INFORMATION
  Report Type: Spontaneous
  Country: CA (occurrence: CA)
  Receive Date: 20210927
  Receipt Date: 20210927
  Transmission Date: 20211014
  Serious: Yes (Hospitalization, Other)
  Sender: FDA-Public Use
  Company Number: CA-AMGEN-CANSP2021143197

PATIENT
  Age: 58 Year
  Sex: Female

DRUGS (3)
  1. CAPLACIZUMAB [Concomitant]
     Active Substance: CAPLACIZUMAB
     Dosage: 1 MILLIGRAM (DAY 10)
  2. RITUXIMAB. [Suspect]
     Active Substance: RITUXIMAB
     Indication: IMMUNE THROMBOCYTOPENIA
     Dosage: UNK (4 WEEKLY DOSES OF 375 MILLIGRAMS PER SQUARE METER)
     Route: 065
  3. METHYLPREDNISOLONE. [Concomitant]
     Active Substance: METHYLPREDNISOLONE
     Dosage: 1 GRAM, QD (FOR THREE DAYS)

REACTIONS (3)
  - Off label use [Unknown]
  - Haemoglobinaemia [Recovered/Resolved]
  - Drug ineffective for unapproved indication [Unknown]
